FAERS Safety Report 7306307-2 (Version None)
Quarter: 2011Q1

REPORT INFORMATION
  Report Type: 
  Country: None (occurrence: None)
  Receive Date: 20110222
  Receipt Date: 20110216
  Transmission Date: 20110831
  Serious: Yes (Hospitalization, Other)
  Sender: FDA-Public Use
  Company Number: PHHO2010US11951

PATIENT
  Sex: Male
  Weight: 114 kg

DRUGS (6)
  1. ENALAPRIL [Concomitant]
     Indication: HYPERTENSION
  2. GLUCOSAMINE /CHONDROITIN /MSM [Concomitant]
     Indication: ARTHRITIS
  3. VERAPAMIL [Concomitant]
     Indication: HYPERTENSION
  4. OMEPRAZOLE [Concomitant]
     Indication: GASTROOESOPHAGEAL REFLUX DISEASE
  5. GLEEVEC [Suspect]
     Indication: CHRONIC MYELOID LEUKAEMIA
     Dosage: 400 MG, QD
     Route: 048
     Dates: start: 20101025
  6. METFORMIN [Concomitant]
     Indication: DIABETES MELLITUS

REACTIONS (18)
  - HYPERLIPIDAEMIA [None]
  - DIARRHOEA [None]
  - PULMONARY CONGESTION [None]
  - NAUSEA [None]
  - VOMITING [None]
  - PNEUMONIA [None]
  - ATRIAL FIBRILLATION [None]
  - CARDIOMEGALY [None]
  - PLEURAL EFFUSION [None]
  - CHILLS [None]
  - CHEST PAIN [None]
  - DIABETES MELLITUS [None]
  - PRODUCTIVE COUGH [None]
  - DYSPNOEA [None]
  - MITRAL VALVE INCOMPETENCE [None]
  - PYREXIA [None]
  - DILATATION ATRIAL [None]
  - TRICUSPID VALVE INCOMPETENCE [None]
